FAERS Safety Report 8715269 (Version 3)
Quarter: 2012Q4

REPORT INFORMATION
  Report Type: 
  Country: US (occurrence: US)
  Receive Date: 20120809
  Receipt Date: 20120927
  Transmission Date: 20130627
  Serious: Yes (Hospitalization)
  Sender: FDA-Public Use
  Company Number: US-ALEXION PHARMACEUTICALS INC.-A201201457

PATIENT
  Age: 35 Year
  Sex: Male
  Weight: 71.6 kg

DRUGS (3)
  1. SOLIRIS 300MG [Suspect]
     Indication: PAROXYSMAL NOCTURNAL HAEMOGLOBINURIA
     Dosage: 900 mg, q2w
     Route: 042
     Dates: start: 20110629
  2. SOLIRIS 300MG [Suspect]
     Dosage: 600 mg, qw
     Route: 042
     Dates: start: 20110601, end: 20110629
  3. FOLIC ACID [Concomitant]
     Dosage: 1 mg, qd
     Route: 048

REACTIONS (2)
  - Haemolytic anaemia [Recovering/Resolving]
  - Pneumonia [Recovering/Resolving]
